FAERS Safety Report 18405446 (Version 3)
Quarter: 2022Q3

REPORT INFORMATION
  Report Type: Spontaneous
  Country: US (occurrence: US)
  Receive Date: 20201020
  Receipt Date: 20220816
  Transmission Date: 20221027
  Serious: No
  Sender: FDA-Public Use
  Company Number: US-PFIZER INC-2020403512

PATIENT
  Age: 67 Year
  Sex: Female

DRUGS (2)
  1. CELEBREX [Suspect]
     Active Substance: CELECOXIB
     Indication: Arthritis
     Dosage: 100 MG, 2X/DAY
     Route: 048
  2. CELEBREX [Suspect]
     Active Substance: CELECOXIB
     Indication: Osteoarthritis

REACTIONS (2)
  - Drug ineffective [Unknown]
  - Discomfort [Recovering/Resolving]
